FAERS Safety Report 21267669 (Version 1)
Quarter: 2022Q3

REPORT INFORMATION
  Report Type: Other
  Country: KW (occurrence: KW)
  Receive Date: 20220829
  Receipt Date: 20220829
  Transmission Date: 20221026
  Serious: Yes (Hospitalization)
  Sender: FDA-Public Use
  Company Number: KW-Genus_Lifesciences-USA-POI0580202200174

PATIENT
  Age: 13 Year
  Sex: Female

DRUGS (7)
  1. YOSPRALA [Suspect]
     Active Substance: ASPIRIN\OMEPRAZOLE
     Indication: Abdominal pain upper
     Route: 048
     Dates: start: 2022, end: 2022
  2. YOSPRALA [Suspect]
     Active Substance: ASPIRIN\OMEPRAZOLE
     Route: 048
     Dates: start: 2022, end: 2022
  3. ESCITALOPRAM [Suspect]
     Active Substance: ESCITALOPRAM OXALATE
     Indication: Obsessive-compulsive disorder
     Dates: start: 2022, end: 2022
  4. ESCITALOPRAM [Suspect]
     Active Substance: ESCITALOPRAM OXALATE
     Dates: start: 2022, end: 2022
  5. ESCITALOPRAM [Suspect]
     Active Substance: ESCITALOPRAM OXALATE
     Dates: start: 2022, end: 2022
  6. ESCITALOPRAM [Suspect]
     Active Substance: ESCITALOPRAM OXALATE
     Dates: start: 2022, end: 2022
  7. ESCITALOPRAM [Suspect]
     Active Substance: ESCITALOPRAM OXALATE
     Dates: start: 2022, end: 2022

REACTIONS (1)
  - Serotonin syndrome [Unknown]

NARRATIVE: CASE EVENT DATE: 20220101
